FAERS Safety Report 23635050 (Version 1)
Quarter: 2024Q1

REPORT INFORMATION
  Report Type: Spontaneous
  Country: US (occurrence: US)
  Receive Date: 20240315
  Receipt Date: 20240315
  Transmission Date: 20240410
  Serious: No
  Sender: FDA-Public Use
  Company Number: US-PADAGIS-2024PAD00336

PATIENT

DRUGS (1)
  1. IMIQUIMOD [Suspect]
     Active Substance: IMIQUIMOD
     Indication: Actinic cheilitis
     Dosage: UNK
     Route: 065

REACTIONS (2)
  - Lichen planus [Recovered/Resolved]
  - Product use in unapproved indication [Unknown]
